FAERS Safety Report 9106101 (Version 1)
Quarter: 2013Q1

REPORT INFORMATION
  Report Type: Spontaneous
  Country: DK (occurrence: DK)
  Receive Date: 20130221
  Receipt Date: 20130221
  Transmission Date: 20140127
  Serious: Yes (Other)
  Sender: FDA-Public Use
  Company Number: DK-WATSON-2013-02521

PATIENT
  Age: 27 Year
  Sex: Female

DRUGS (5)
  1. ETOPOSIDE [Suspect]
     Indication: EWING^S SARCOMA
     Dosage: SIX CYCLES
     Route: 065
  2. DOXORUBICIN [Suspect]
     Indication: EWING^S SARCOMA
     Dosage: SIX CYCLES
     Route: 065
  3. VINCRISTINE [Suspect]
     Indication: EWING^S SARCOMA
     Dosage: SIX CYCLES + THREE SERIES POST SURGERY
     Route: 065
  4. IFOSFAMIDE [Suspect]
     Indication: EWING^S SARCOMA
     Dosage: SIX CYCLES + 3 SERIES POST SURGERY
     Route: 065
  5. DACTINOMYCIN [Suspect]
     Indication: EWING^S SARCOMA
     Dosage: . THREE SERIES
     Route: 065

REACTIONS (3)
  - Amenorrhoea [Recovered/Resolved]
  - Gonadotrophin deficiency [Recovered/Resolved]
  - Hot flush [Recovered/Resolved]
